FAERS Safety Report 20557293 (Version 5)
Quarter: 2022Q4

REPORT INFORMATION
  Report Type: Report from Study
  Country: US (occurrence: US)
  Receive Date: 20220307
  Receipt Date: 20221102
  Transmission Date: 20230113
  Serious: Yes (Hospitalization, Other)
  Sender: FDA-Public Use
  Company Number: US-TAKEDA-2021TUS059168

PATIENT
  Age: 15 Year
  Sex: Male

DRUGS (30)
  1. IDURSULFASE [Suspect]
     Active Substance: IDURSULFASE
     Indication: Mucopolysaccharidosis II
     Dosage: 0.5 MILLIGRAM/KILOGRAM, 1/WEEK
     Route: 042
     Dates: start: 20081219, end: 20120408
  2. IDURSULFASE [Suspect]
     Active Substance: IDURSULFASE
     Dosage: 0.5 MILLIGRAM/KILOGRAM, Q2WEEKS
     Route: 042
     Dates: start: 20151008
  3. IBUPROFEN [Concomitant]
     Active Substance: IBUPROFEN
     Indication: Pyrexia
     Dosage: UNK
     Route: 048
     Dates: start: 20090101
  4. IBUPROFEN [Concomitant]
     Active Substance: IBUPROFEN
     Indication: Premedication
  5. PREDNISOLONE [Concomitant]
     Active Substance: PREDNISOLONE
     Indication: Infusion related reaction
     Dosage: UNK
     Route: 048
     Dates: start: 20090101, end: 20090309
  6. LIDOCAINE AND PRILOCAINE [Concomitant]
     Active Substance: LIDOCAINE\PRILOCAINE
     Indication: Local anaesthesia
     Dosage: UNK
     Route: 061
     Dates: start: 20090716, end: 20170315
  7. LIDOCAINE AND PRILOCAINE [Concomitant]
     Active Substance: LIDOCAINE\PRILOCAINE
     Dosage: UNK
     Route: 061
     Dates: start: 20150303
  8. ALBUTEROL [Concomitant]
     Active Substance: ALBUTEROL
     Indication: Mucopolysaccharidosis II
     Dosage: UNK
     Route: 050
     Dates: start: 20121221
  9. ALTEPLASE [Concomitant]
     Active Substance: ALTEPLASE
     Indication: Catheter placement
     Dosage: UNK
     Route: 042
     Dates: start: 20150102
  10. LORATADINE [Concomitant]
     Active Substance: LORATADINE
     Indication: Hypersensitivity
     Dosage: UNK
     Route: 048
     Dates: start: 20150303
  11. DIPHENHYDRAMINE [Concomitant]
     Active Substance: DIPHENHYDRAMINE
     Indication: Premedication
     Dosage: UNK
     Route: 048
     Dates: start: 20150407
  12. ACETAMINOPHEN [Concomitant]
     Active Substance: ACETAMINOPHEN
     Indication: Premedication
     Dosage: UNK
     Route: 048
     Dates: start: 20150407
  13. ACETAMINOPHEN [Concomitant]
     Active Substance: ACETAMINOPHEN
     Dosage: UNK
     Route: 048
     Dates: start: 20170504
  14. HEPARIN [Concomitant]
     Active Substance: HEPARIN SODIUM
     Indication: Catheter management
     Dosage: UNK
     Route: 042
     Dates: start: 20150415
  15. BUDESONIDE [Concomitant]
     Active Substance: BUDESONIDE
     Dosage: UNK
     Route: 050
     Dates: start: 20150512
  16. IPRATROPIUM [Concomitant]
     Active Substance: IPRATROPIUM
     Indication: Rhinorrhoea
     Dosage: UNK
     Route: 045
     Dates: start: 20150709, end: 20161207
  17. POLYETHYLENE GLYCOL [Concomitant]
     Active Substance: POLYETHYLENE GLYCOL
     Indication: Constipation
     Dosage: UNK
     Route: 048
     Dates: start: 20150908
  18. FLUTICASONE [Concomitant]
     Active Substance: FLUTICASONE
     Indication: Rhinitis
     Dosage: UNK
     Route: 045
     Dates: start: 20151001
  19. ROCEPHIN [Concomitant]
     Active Substance: CEFTRIAXONE SODIUM
     Indication: Antibiotic therapy
     Dosage: UNK
     Route: 042
     Dates: start: 20160817, end: 20160820
  20. BENADRYL [Concomitant]
     Active Substance: DIPHENHYDRAMINE HYDROCHLORIDE
     Indication: Antiallergic therapy
     Dosage: UNK
     Route: 042
     Dates: start: 20160817, end: 20160821
  21. AMOXICILLIN [Concomitant]
     Active Substance: AMOXICILLIN
     Indication: Pyrexia
     Dosage: UNK
     Route: 048
     Dates: start: 20160817, end: 20160818
  22. SODIUM CHLORIDE [Concomitant]
     Active Substance: SODIUM CHLORIDE
     Indication: Nasal congestion
     Dosage: UNK
     Route: 045
     Dates: start: 20160820, end: 20170317
  23. HYDROXYZINE [Concomitant]
     Active Substance: HYDROXYZINE HYDROCHLORIDE
     Indication: Anxiety
     Dosage: UNK
     Route: 048
     Dates: start: 20170118
  24. CLOTRIMAZOLE [Concomitant]
     Active Substance: CLOTRIMAZOLE
     Indication: Dermatitis diaper
     Dosage: UNK
     Route: 061
     Dates: start: 20180112
  25. MICONAZOLE [Concomitant]
     Active Substance: MICONAZOLE
     Indication: Dermatitis diaper
     Dosage: UNK
     Route: 061
     Dates: start: 20180112
  26. SULFAMETHOXAZOLE\TRIMETHOPRIM [Concomitant]
     Active Substance: SULFAMETHOXAZOLE\TRIMETHOPRIM
     Indication: Parapharyngeal space infection
     Dosage: UNK
     Route: 048
     Dates: start: 20180112, end: 20180122
  27. BACTRIM [Concomitant]
     Active Substance: SULFAMETHOXAZOLE\TRIMETHOPRIM
     Indication: Cellulitis
     Dosage: UNK
     Route: 048
     Dates: start: 20180116, end: 20180126
  28. AUGMENTIN [Concomitant]
     Active Substance: AMOXICILLIN\CLAVULANATE POTASSIUM
     Indication: Cellulitis
     Dosage: UNK
     Route: 048
     Dates: start: 20180116, end: 20180126
  29. LOTRIMIN [Concomitant]
     Active Substance: CLOTRIMAZOLE
     Indication: Cellulitis
     Dosage: UNK
     Route: 061
     Dates: start: 20180116, end: 20180126
  30. ACETAMINOPHEN [Concomitant]
     Active Substance: ACETAMINOPHEN
     Dosage: UNK
     Route: 048
     Dates: start: 20170504

REACTIONS (3)
  - Increased upper airway secretion [Recovered/Resolved with Sequelae]
  - Respiratory failure [Recovered/Resolved]
  - Hypoxia [Recovered/Resolved with Sequelae]

NARRATIVE: CASE EVENT DATE: 20210606
